FAERS Safety Report 11751803 (Version 4)
Quarter: 2016Q1

REPORT INFORMATION
  Report Type: Spontaneous
  Country: US (occurrence: US)
  Receive Date: 20151118
  Receipt Date: 20160210
  Transmission Date: 20160525
  Serious: Yes (Other)
  Sender: FDA-Public Use
  Company Number: US-PFIZER INC-2015390316

PATIENT
  Age: 78 Year
  Sex: Female
  Weight: 77 kg

DRUGS (3)
  1. PREMARIN [Suspect]
     Active Substance: ESTROGENS, CONJUGATED
     Indication: VULVOVAGINAL PAIN
     Dosage: UNK, 1X/DAY
     Dates: start: 20151019
  2. PREMARIN [Suspect]
     Active Substance: ESTROGENS, CONJUGATED
     Indication: TENDERNESS
  3. VAGISIL ANTI ITCH ORIGINAL STRENGTH [Concomitant]
     Active Substance: BENZOCAINE\RESORCINOL
     Dosage: UNK

REACTIONS (3)
  - Breast cyst [Unknown]
  - Product use issue [Unknown]
  - Breast pain [Unknown]

NARRATIVE: CASE EVENT DATE: 2015
